FAERS Safety Report 19906480 (Version 1)
Quarter: 2021Q3

REPORT INFORMATION
  Report Type: Spontaneous
  Country: DE (occurrence: DE)
  Receive Date: 20210930
  Receipt Date: 20210930
  Transmission Date: 20211014
  Serious: Yes (Death, Life-Threatening, Hospitalization, Other)
  Sender: FDA-Public Use
  Company Number: DE-MYLANLABS-2021M1067587

PATIENT
  Age: 80 Year
  Sex: Female
  Weight: 71 kg

DRUGS (29)
  1. AMLODIPIN HEXAL                    /00972401/ [Suspect]
     Active Substance: AMLODIPINE BESYLATE
     Dosage: 5 MG, BID STOPPED ON 12 JUN 2018, ONGOING AT DISCHARGE FROM REHABILITATION, (8 A.M AND 6 P.M)
     Route: 048
     Dates: start: 20180523
  2. HALOPERIDOL NEURAXPHARM [Concomitant]
     Active Substance: HALOPERIDOL
     Indication: PRODUCT USED FOR UNKNOWN INDICATION
     Dosage: 30 MILLILITER (FEB?2019)
     Route: 065
  3. MACROGOL ABZ BALANCE [Concomitant]
     Active Substance: POLYETHYLENE GLYCOL 3350\POTASSIUM CHLORIDE\SODIUM BICARBONATE\SODIUM CHLORIDE
     Indication: PRODUCT USED FOR UNKNOWN INDICATION
     Dosage: UNK (POWDER) (FEB?2019)
     Route: 065
  4. AMLODIPINE [Suspect]
     Active Substance: AMLODIPINE BESYLATE
     Indication: PRODUCT USED FOR UNKNOWN INDICATION
     Dosage: 5 DF, BID(ONCE IN THE MORNING, ONCE IN THE EVENING)
     Route: 065
     Dates: start: 200803
  5. L?THYROX HEXAL [Suspect]
     Active Substance: LEVOTHYROXINE SODIUM
     Dosage: UNK, QD (STOPPED ON 12 JUN 2018 BUT ONGOING AT DISCHARGE FROM REHABILITATION, 1.25 TABLETS OF 100 ?G
     Route: 048
     Dates: start: 20180524
  6. FUROSEMID                          /00032601/ [Concomitant]
     Active Substance: FUROSEMIDE
     Indication: PRODUCT USED FOR UNKNOWN INDICATION
     Dosage: 80 MILLIGRAM, QD (START MAR?2019)
     Route: 065
  7. BISOPROLOL?RATIOPHARM [Concomitant]
     Active Substance: BISOPROLOL
     Indication: PRODUCT USED FOR UNKNOWN INDICATION
     Dosage: 5 MG, QD (24?MAY?2018 TO 12 JUN 2018 BUT ONGOING AT DISCHARGE FROM REHABILITATION
     Route: 048
  8. BISOPROLOL COMP [Concomitant]
     Active Substance: BISOPROLOL FUMARATE\HYDROCHLOROTHIAZIDE
     Indication: PRODUCT USED FOR UNKNOWN INDICATION
     Dosage: UNK, QD (HALF X 10/25, 1X DAILY (MORNING))
     Route: 065
  9. HYDROMORPHONE [Concomitant]
     Active Substance: HYDROMORPHONE
     Indication: PRODUCT USED FOR UNKNOWN INDICATION
     Dosage: 2 MILLIGRAM (START FEB?2019)
     Route: 065
  10. PANTOPRAZOLE [Concomitant]
     Active Substance: PANTOPRAZOLE
     Dosage: 40 MILLIGRAM (START JAN?2019)
     Route: 065
  11. L?THYROXIN?HENNING [Concomitant]
     Active Substance: LEVOTHYROXINE SODIUM
     Dosage: UNK (125)
     Route: 065
     Dates: start: 2016
  12. MOMETASONE [Concomitant]
     Active Substance: MOMETASONE
     Indication: PRODUCT USED FOR UNKNOWN INDICATION
     Dosage: 1 MILLIGRAM/GRAM
     Route: 065
  13. DIGIMERCK [Concomitant]
     Active Substance: DIGITOXIN
     Indication: PRODUCT USED FOR UNKNOWN INDICATION
     Dosage: UNK (0.07), JAN?2019
     Route: 065
  14. PREDNISOLONE. [Suspect]
     Active Substance: PREDNISOLONE
     Indication: PRODUCT USED FOR UNKNOWN INDICATION
     Dosage: UNK
     Route: 065
  15. BISOPROLOL PLUS [Suspect]
     Active Substance: BISOPROLOL FUMARATE\HYDROCHLOROTHIAZIDE
     Indication: PRODUCT USED FOR UNKNOWN INDICATION
     Dosage: UNK
     Route: 065
     Dates: start: 2014, end: 2018
  16. L?THYROX HEXAL [Suspect]
     Active Substance: LEVOTHYROXINE SODIUM
     Indication: PRODUCT USED FOR UNKNOWN INDICATION
     Dosage: UNK
     Route: 065
     Dates: start: 2014, end: 2016
  17. AMLODIPIN HEXAL                    /00972401/ [Suspect]
     Active Substance: AMLODIPINE BESYLATE
     Indication: PRODUCT USED FOR UNKNOWN INDICATION
     Dosage: 5 MG
     Route: 065
     Dates: start: 2016, end: 2017
  18. HCT HEXAL [Concomitant]
     Active Substance: HYDROCHLOROTHIAZIDE
     Indication: PRODUCT USED FOR UNKNOWN INDICATION
     Dosage: 25 MG, QD (HALF TABLET OF 25 MG) (04?MAY?2018)
     Route: 048
     Dates: end: 20180524
  19. FENTANYL CT [Concomitant]
     Indication: PRODUCT USED FOR UNKNOWN INDICATION
     Dosage: 12 UG/H (MAR?2019)
     Route: 065
  20. ADVITAN [Concomitant]
     Indication: PRODUCT USED FOR UNKNOWN INDICATION
     Dosage: UNK (START: 2018)
     Route: 065
  21. FERROSANOL [Concomitant]
     Active Substance: FERROUS GLUCONATE
     Indication: PRODUCT USED FOR UNKNOWN INDICATION
     Dosage: 1 DF, QD (1X DAILY (MORNING)
     Route: 065
  22. L?THYROXIN?HENNING [Concomitant]
     Active Substance: LEVOTHYROXINE SODIUM
     Indication: PRODUCT USED FOR UNKNOWN INDICATION
     Dosage: UNK, QD
     Route: 065
     Dates: start: 199003, end: 2018
  23. TAVOR                              /00848101/ [Concomitant]
     Active Substance: SIMVASTATIN
     Indication: PRODUCT USED FOR UNKNOWN INDICATION
     Dosage: UNK (1.0) (START FEB?2019)
     Route: 065
  24. PANTOPRAZOLE [Concomitant]
     Active Substance: PANTOPRAZOLE
     Indication: PRODUCT USED FOR UNKNOWN INDICATION
     Dosage: UNK, QD (1X 40)
     Route: 065
  25. EUTHYROX [Concomitant]
     Active Substance: LEVOTHYROXINE SODIUM
     Indication: PRODUCT USED FOR UNKNOWN INDICATION
     Dosage: UNK, QD (1X 125, 1X DAILY (MORNING))
     Route: 065
  26. MIDAZOLAM. [Concomitant]
     Active Substance: MIDAZOLAM
     Indication: PRODUCT USED FOR UNKNOWN INDICATION
     Dosage: UNK (MAR?2019)
     Route: 065
  27. IBUPROFEN. [Concomitant]
     Active Substance: IBUPROFEN
     Indication: PRODUCT USED FOR UNKNOWN INDICATION
     Dosage: UNK, BID (1X 400 , 2X DAILY (MORNING AND EVENING))
     Route: 065
  28. VALSARTAN MYLAN [Suspect]
     Active Substance: VALSARTAN
     Indication: PRODUCT USED FOR UNKNOWN INDICATION
     Dosage: UNK [MAH: MYLAN DURA]
     Route: 065
     Dates: start: 201702, end: 2018
  29. PARACETAMOL [Concomitant]
     Active Substance: ACETAMINOPHEN
     Indication: PRODUCT USED FOR UNKNOWN INDICATION
     Dosage: 1000 MILLIGRAM (MAR?2019)
     Route: 065

REACTIONS (9)
  - Brain oedema [Unknown]
  - Renal neoplasm [Fatal]
  - Adenoma benign [Recovered/Resolved]
  - Metastases to central nervous system [Unknown]
  - Suicidal ideation [Fatal]
  - Clear cell renal cell carcinoma [Fatal]
  - Metastases to lung [Fatal]
  - Renal cancer [Fatal]
  - Metastatic renal cell carcinoma [Not Recovered/Not Resolved]

NARRATIVE: CASE EVENT DATE: 20180425
